FAERS Safety Report 5099164-9 (Version None)
Quarter: 2006Q3

REPORT INFORMATION
  Report Type: 
  Country: None (occurrence: None)
  Receive Date: 20060728
  Receipt Date: 20060621
  Transmission Date: 20061208
  Serious: No
  Sender: FDA-Public Use
  Company Number: COT_0618_2006

PATIENT
  Age: 81 Year
  Sex: Male
  Weight: 82.6 kg

DRUGS (8)
  1. VENTAVIS [Suspect]
     Indication: PULMONARY HYPERTENSION
     Dosage: 5 MCG 5XD IH
     Dates: start: 20051013
  2. PRAVACHOL [Concomitant]
  3. PREDNISONE TAB [Concomitant]
  4. PRILOSEC [Concomitant]
  5. ALTACE [Concomitant]
  6. ZETIA [Concomitant]
  7. COUMADIN [Concomitant]
  8. OXYGEN [Concomitant]

REACTIONS (1)
  - FLATULENCE [None]
